FAERS Safety Report 9523872 (Version 3)
Quarter: 2014Q1

REPORT INFORMATION
  Report Type: Spontaneous
  Country: US (occurrence: None)
  Receive Date: 20130912
  Receipt Date: 20140207
  Transmission Date: 20141002
  Serious: Yes (Hospitalization)
  Sender: FDA-Public Use
  Company Number: AEGR000134

PATIENT
  Age: 57 Year
  Sex: Male
  Weight: 113.4 kg

DRUGS (19)
  1. JUXTAPID [Suspect]
     Indication: TYPE IIA HYPERLIPIDAEMIA
     Route: 048
     Dates: start: 20130204, end: 201302
  2. CYMBALTA [Concomitant]
  3. WARFARIN SODIUM (WARFARIN SODIUM) [Concomitant]
  4. LISINOPRIL (LISINOPRIL) [Concomitant]
  5. COLCHRYS (COLCHICINE) [Concomitant]
  6. RANEXA (RANOLAZINE) [Concomitant]
  7. ALLOPURINOL [Concomitant]
  8. DIVALPROEX SODIUM (VALPROATE SEMISODIUM) [Concomitant]
  9. WELCHOL (COLESEVELAM HYDROCHLORIDE) [Concomitant]
  10. GEMFIBROZIL (GEMFIBROZIL) [Concomitant]
  11. TRAZODONE HCL (TRAZODONE HYDROCHLORIDE) [Concomitant]
  12. ALBUTEROL (SALBUTAMOL SULFATE) [Concomitant]
  13. FUROSEMIDE (FUROSEMIDE) [Concomitant]
  14. ASPIRIN (ACETYLSALICYLIC ACID) [Concomitant]
  15. DEPAKOTE (VALPROATE SEMISODIUM) [Concomitant]
  16. NITROSTAT (GLYCERYL TRINITRATE) [Concomitant]
  17. MULTIVITAMIN (VITAMINS NOS) [Concomitant]
  18. VYTORIN (EZETIMIBE, SIMVASTATIN) [Concomitant]
  19. LOVAZA (OMEGA-3-ACID ETHYL ESTER) [Concomitant]

REACTIONS (4)
  - Thrombosis [None]
  - Cellulitis [None]
  - Weight decreased [None]
  - Blood disorder [None]
